FAERS Safety Report 5215671-X (Version None)
Quarter: 2007Q1

REPORT INFORMATION
  Report Type: 
  Country: None (occurrence: None)
  Receive Date: 20070123
  Receipt Date: 20070118
  Transmission Date: 20070707
  Serious: Yes (Hospitalization, Other)
  Sender: FDA-Public Use
  Company Number: ZA-AVENTIS-200710036EU

PATIENT
  Age: 53 Year
  Sex: Male

DRUGS (17)
  1. ENOXAPARIN SODIUM [Suspect]
     Route: 058
     Dates: start: 20061128, end: 20061201
  2. KEFZOL [Concomitant]
     Indication: INFECTION PROPHYLAXIS
     Route: 042
     Dates: start: 20061128, end: 20061130
  3. SODIUM CHLORIDE [Concomitant]
     Route: 042
     Dates: start: 20061128, end: 20061130
  4. OXYCONTIN [Concomitant]
     Indication: PAIN PROPHYLAXIS
     Route: 048
     Dates: start: 20061128
  5. PEPCID                             /00706001/ [Concomitant]
     Indication: PAIN PROPHYLAXIS
     Route: 048
     Dates: start: 20061128
  6. SURFAK [Concomitant]
     Indication: CONSTIPATION PROPHYLAXIS
     Route: 048
     Dates: start: 20061128
  7. THERAGRAN-M [Concomitant]
     Route: 048
     Dates: start: 20061128
  8. CHROMAGEN                          /00922301/ [Concomitant]
     Route: 048
     Dates: start: 20061128
  9. VERSED [Concomitant]
     Route: 042
     Dates: start: 20061128, end: 20061128
  10. FENTANYL TRANSDERMAL SYSTEM [Concomitant]
     Route: 042
     Dates: start: 20061128, end: 20061128
  11. TORADOL [Concomitant]
     Indication: PAIN PROPHYLAXIS
     Route: 042
     Dates: start: 20061128, end: 20061128
  12. ZOFRAN [Concomitant]
     Route: 042
     Dates: start: 20061128, end: 20061128
  13. LACTATED RINGER'S [Concomitant]
     Route: 042
     Dates: start: 20061128, end: 20061128
  14. DIPRIVAN [Concomitant]
     Route: 042
     Dates: start: 20061128, end: 20061128
  15. SEVOFLURANE [Concomitant]
     Route: 042
     Dates: start: 20061128, end: 20061128
  16. REGLAN                             /00041901/ [Concomitant]
     Route: 042
     Dates: start: 20061128, end: 20061128
  17. DROPERIDOL [Concomitant]
     Route: 042
     Dates: start: 20061128, end: 20061128

REACTIONS (1)
  - BLOOD BILIRUBIN INCREASED [None]
